FAERS Safety Report 4514225-8 (Version None)
Quarter: 2004Q4

REPORT INFORMATION
  Report Type: 
  Country: None (occurrence: None)
  Receive Date: 20040928
  Receipt Date: 20040715
  Transmission Date: 20050328
  Serious: No
  Sender: FDA-Public Use
  Company Number: 04P-163-0267167-00

PATIENT
  Age: 61 Year
  Sex: Male
  Weight: 72.5755 kg

DRUGS (7)
  1. HUMIRA [Suspect]
     Indication: RHEUMATOID ARTHRITIS
     Dosage: 40 MG, 1 IN 2 WK, SUBCUTANEOUS
     Route: 058
     Dates: start: 20031211
  2. METHOTREXATE [Concomitant]
  3. TICOSIN [Concomitant]
  4. DILTIAZEM HYDROCHLORIDE [Concomitant]
  5. FOLIC ACID [Concomitant]
  6. GLUCOSAMINE [Concomitant]
  7. ASPIRIN [Concomitant]

REACTIONS (4)
  - HYPOAESTHESIA [None]
  - INJECTION SITE STINGING [None]
  - PAIN IN EXTREMITY [None]
  - TINNITUS [None]
